FAERS Safety Report 21821644 (Version 2)
Quarter: 2023Q1

REPORT INFORMATION
  Report Type: Report from Study
  Country: US (occurrence: US)
  Receive Date: 20230105
  Receipt Date: 20230323
  Transmission Date: 20230418
  Serious: No
  Sender: FDA-Public Use
  Company Number: US-ABBVIE-4231145

PATIENT
  Age: 58 Year
  Sex: Female

DRUGS (1)
  1. HUMIRA [Suspect]
     Active Substance: ADALIMUMAB
     Indication: Ankylosing spondylitis
     Dosage: CF
     Route: 058

REACTIONS (3)
  - SARS-CoV-2 test positive [Recovered/Resolved]
  - Ankylosing spondylitis [Recovering/Resolving]
  - Ankylosing spondylitis [Recovered/Resolved]

NARRATIVE: CASE EVENT DATE: 20221001
